FAERS Safety Report 21387754 (Version 1)
Quarter: 2022Q3

REPORT INFORMATION
  Report Type: Spontaneous
  Country: US (occurrence: None)
  Receive Date: 20220926
  Receipt Date: 20220926
  Transmission Date: 20221027
  Serious: Yes (Other)
  Sender: FDA-Public Use
  Company Number: None

PATIENT
  Age: 67 Year
  Sex: Female

DRUGS (3)
  1. STELARA [Suspect]
     Active Substance: USTEKINUMAB
     Indication: Crohn^s disease
     Dosage: OTHER FREQUENCY : Q6WK;?
     Route: 058
     Dates: start: 20220405
  2. POTASSIUM CIT [Concomitant]
  3. TABLEVITAMIN D3 [Concomitant]

REACTIONS (1)
  - Colorectal cancer [None]

NARRATIVE: CASE EVENT DATE: 20220901
